FAERS Safety Report 7874537-7 (Version None)
Quarter: 2011Q4

REPORT INFORMATION
  Report Type: 
  Country: None (occurrence: None)
  Receive Date: 20111030
  Receipt Date: 20111024
  Transmission Date: 20120403
  Serious: Yes (Life-Threatening)
  Sender: FDA-Public Use
  Company Number: RU-CELGENEUS-251-CTHAL-11093768

PATIENT
  Sex: Male
  Weight: 68 kg

DRUGS (1)
  1. THALIDOMIDE [Suspect]
     Indication: MULTIPLE MYELOMA
     Dosage: 100 MILLIGRAM
     Route: 048
     Dates: start: 20041103, end: 20110906

REACTIONS (1)
  - ACUTE MYELOID LEUKAEMIA [None]
